FAERS Safety Report 23079905 (Version 1)
Quarter: 2023Q4

REPORT INFORMATION
  Report Type: Spontaneous
  Country: US (occurrence: US)
  Receive Date: 20231018
  Receipt Date: 20231018
  Transmission Date: 20240110
  Serious: No
  Sender: FDA-Public Use
  Company Number: US-DSJP-DSU-2023-142641

PATIENT
  Age: 52 Year
  Sex: Female

DRUGS (3)
  1. ENHERTU [Suspect]
     Active Substance: FAM-TRASTUZUMAB DERUXTECAN-NXKI
     Indication: Breast cancer female
     Dosage: UNK
     Route: 065
     Dates: start: 20231011
  2. CAPECITABINE [Concomitant]
     Active Substance: CAPECITABINE
     Indication: Breast cancer female
     Dosage: UNK
     Route: 065
     Dates: start: 20231011
  3. TUKYSA [Concomitant]
     Active Substance: TUCATINIB
     Indication: Breast cancer female
     Dosage: UNK
     Route: 065

REACTIONS (8)
  - Illness [Unknown]
  - Rhinorrhoea [Unknown]
  - Retching [Unknown]
  - Headache [Unknown]
  - Dry skin [Unknown]
  - Cough [Unknown]
  - Diarrhoea [Unknown]
  - Haematochezia [Unknown]

NARRATIVE: CASE EVENT DATE: 20231011
